FAERS Safety Report 16363850 (Version 4)
Quarter: 2022Q1

REPORT INFORMATION
  Report Type: Spontaneous
  Country: US (occurrence: US)
  Receive Date: 20190528
  Receipt Date: 20220228
  Transmission Date: 20220424
  Serious: Yes (Other)
  Sender: FDA-Public Use
  Company Number: US-PFIZER INC-2019219402

PATIENT
  Age: 67 Year
  Sex: Female

DRUGS (2)
  1. NICOTROL [Suspect]
     Active Substance: NICOTINE
     Indication: Smoking cessation therapy
     Dosage: UNK
  2. NICOTROL [Suspect]
     Active Substance: NICOTINE
     Dosage: 10 MG; 168 CARTRIDGES (90 D SUPPLY), 2 INHALATIONS Q HR PRN

REACTIONS (2)
  - Pneumonia [Unknown]
  - Product prescribing issue [Unknown]
